FAERS Safety Report 25188448 (Version 1)
Quarter: 2025Q2

REPORT INFORMATION
  Report Type: Spontaneous
  Country: US (occurrence: US)
  Receive Date: 20250411
  Receipt Date: 20250411
  Transmission Date: 20250716
  Serious: Yes (Death, Other)
  Sender: SANDOZ
  Company Number: US-002147023-NVSC2023US158211

PATIENT
  Age: 18 Year
  Sex: Male

DRUGS (9)
  1. BEVACIZUMAB [Suspect]
     Active Substance: BEVACIZUMAB
     Indication: Astrocytoma malignant
     Route: 065
  2. BEVACIZUMAB [Suspect]
     Active Substance: BEVACIZUMAB
     Route: 065
  3. CARBOPLATIN [Suspect]
     Active Substance: CARBOPLATIN
     Indication: Astrocytoma malignant
     Route: 065
  4. EVEROLIMUS [Suspect]
     Active Substance: EVEROLIMUS
     Indication: Astrocytoma malignant
     Route: 065
  5. LOMUSTINE [Suspect]
     Active Substance: LOMUSTINE
     Indication: Astrocytoma malignant
     Dosage: 1 DF, QD
     Route: 065
  6. PEMBROLIZUMAB [Suspect]
     Active Substance: PEMBROLIZUMAB
     Indication: Astrocytoma malignant
     Route: 065
  7. TEMOZOLOMIDE [Suspect]
     Active Substance: TEMOZOLOMIDE
     Indication: Astrocytoma malignant
     Route: 065
  8. VELEDIMEX [Suspect]
     Active Substance: VELEDIMEX
     Dosage: 1 DOSAGE FORM, QD (ONCE-DAILY DOSES)
     Route: 065
  9. VELEDIMEX [Suspect]
     Active Substance: VELEDIMEX
     Indication: Astrocytoma malignant
     Route: 048

REACTIONS (4)
  - Astrocytoma malignant [Fatal]
  - Malignant neoplasm progression [Fatal]
  - Therapy non-responder [Unknown]
  - Product use in unapproved indication [Unknown]
